FAERS Safety Report 5152236-2 (Version None)
Quarter: 2006Q4

REPORT INFORMATION
  Report Type: 
  Country: None (occurrence: None)
  Receive Date: 20061114
  Receipt Date: 20061114
  Transmission Date: 20070319
  Serious: No
  Sender: FDA-Public Use
  Company Number: None

PATIENT
  Sex: Female
  Weight: 57.1532 kg

DRUGS (1)
  1. BACTRIM DS [Suspect]
     Indication: VAGINAL INFECTION
     Dosage: 1 TABLET  TWICE DAILY  PO
     Route: 048
     Dates: start: 20061108, end: 20061110

REACTIONS (7)
  - ARTHRALGIA [None]
  - BREAST TENDERNESS [None]
  - HYPERAESTHESIA [None]
  - INSOMNIA [None]
  - MUSCULAR WEAKNESS [None]
  - NERVOUSNESS [None]
  - VERTIGO [None]
